FAERS Safety Report 5785951-8 (Version None)
Quarter: 2008Q2

REPORT INFORMATION
  Report Type: 
  Country: None (occurrence: None)
  Receive Date: 20080624
  Receipt Date: 20071010
  Transmission Date: 20081010
  Serious: No
  Sender: FDA-Public Use
  Company Number: US-ASTRAZENECA-2007UW13458

PATIENT
  Age: 13 Year
  Sex: Male

DRUGS (3)
  1. PULMICORT RESPULES [Suspect]
     Indication: ASTHMA
     Route: 055
  2. ALBUTEROL [Concomitant]
  3. ENZYMES [Concomitant]

REACTIONS (2)
  - COUGH [None]
  - PHARYNGOLARYNGEAL PAIN [None]
